FAERS Safety Report 19087049 (Version 1)
Quarter: 2021Q2

REPORT INFORMATION
  Report Type: Report from Study
  Country: AU (occurrence: AU)
  Receive Date: 20210402
  Receipt Date: 20210402
  Transmission Date: 20210717
  Serious: Yes (Hospitalization)
  Sender: FDA-Public Use
  Company Number: AU-GLAXOSMITHKLINE-AU2021APC072332

PATIENT
  Age: 52 Year
  Sex: Male

DRUGS (1)
  1. MEPOLIZUMAB [Suspect]
     Active Substance: MEPOLIZUMAB
     Indication: ASTHMA
     Dosage: 100 MG, Z EVERY 4 WEEK
     Route: 058
     Dates: start: 20210215

REACTIONS (1)
  - Asthma [Recovering/Resolving]

NARRATIVE: CASE EVENT DATE: 20210329
